FAERS Safety Report 17166552 (Version 1)
Quarter: 2019Q4

REPORT INFORMATION
  Report Type: Spontaneous
  Country: US (occurrence: US)
  Receive Date: 20191217
  Receipt Date: 20191217
  Transmission Date: 20200122
  Serious: No
  Sender: FDA-Public Use
  Company Number: US-BRECKENRIDGE PHARMACEUTICAL, INC.-2077932

PATIENT
  Age: 88 Year
  Sex: Male

DRUGS (2)
  1. METOPROLOL. [Concomitant]
     Active Substance: METOPROLOL
  2. AZELASTINE HYDROCHLORIDE. [Suspect]
     Active Substance: AZELASTINE HYDROCHLORIDE
     Indication: RHINORRHOEA
     Route: 045

REACTIONS (1)
  - Dizziness [None]
